FAERS Safety Report 6498755-8 (Version None)
Quarter: 2009Q4

REPORT INFORMATION
  Report Type: 
  Country: None (occurrence: None)
  Receive Date: 20091215
  Receipt Date: 20091203
  Transmission Date: 20100525
  Serious: Yes (Other)
  Sender: FDA-Public Use
  Company Number: PHHY2009BR24795

PATIENT
  Sex: Male
  Weight: 72 kg

DRUGS (5)
  1. EXELON [Suspect]
     Dosage: 10MG/10CM2, 1 PATCH EVERY 24 HOURS
     Route: 062
  2. EXELON [Suspect]
     Dosage: 9 MG/5CM2, QD
     Route: 062
  3. EXELON [Suspect]
     Dosage: 6MG, 1 CAPSULE DAILY
     Dates: start: 20091123
  4. EXELON [Suspect]
     Dosage: 6MG, 1 CAPSULE DAILY
     Dates: start: 20091202
  5. REMINYL [Concomitant]

REACTIONS (11)
  - ARRHYTHMIA [None]
  - ASTHENIA [None]
  - BLOOD PRESSURE FLUCTUATION [None]
  - DIARRHOEA [None]
  - DIZZINESS [None]
  - DROOLING [None]
  - NAUSEA [None]
  - PNEUMONIA [None]
  - SALIVARY HYPERSECRETION [None]
  - SYNCOPE [None]
  - TREMOR [None]
